FAERS Safety Report 8154951-5 (Version None)
Quarter: 2012Q1

REPORT INFORMATION
  Report Type: 
  Country: None (occurrence: None)
  Receive Date: 20120221
  Receipt Date: 20120215
  Transmission Date: 20120608
  Serious: Yes (Other)
  Sender: FDA-Public Use
  Company Number: PHHY2012CA003631

PATIENT
  Sex: Female

DRUGS (1)
  1. GILENYA [Suspect]
     Indication: RELAPSING-REMITTING MULTIPLE SCLEROSIS
     Dosage: 0.5 MG, DAILY
     Route: 048
     Dates: start: 20120110

REACTIONS (7)
  - DIARRHOEA [None]
  - BLOOD PRESSURE DECREASED [None]
  - DIPLOPIA [None]
  - FATIGUE [None]
  - EYE PAIN [None]
  - DIZZINESS [None]
  - MACULAR DEGENERATION [None]
